FAERS Safety Report 17253773 (Version 1)
Quarter: 2020Q1

REPORT INFORMATION
  Report Type: Spontaneous
  Country: US (occurrence: US)
  Receive Date: 20200109
  Receipt Date: 20200109
  Transmission Date: 20200409
  Serious: Yes (Other)
  Sender: FDA-Public Use
  Company Number: US-MALLINCKRODT-T201909172

PATIENT
  Sex: Male

DRUGS (1)
  1. UVADEX [Suspect]
     Active Substance: METHOXSALEN
     Indication: CUTANEOUS T-CELL LYMPHOMA
     Dosage: UNK (EXTRACORPOREAL PHOTOPHERESIS)
     Route: 050

REACTIONS (1)
  - Ankylosing spondylitis [Unknown]
